FAERS Safety Report 25242413 (Version 1)
Quarter: 2025Q2

REPORT INFORMATION
  Report Type: Spontaneous
  Country: US (occurrence: US)
  Receive Date: 20250427
  Receipt Date: 20250427
  Transmission Date: 20250716
  Serious: No
  Sender: INNOGENIX, LLC
  Company Number: US-Innogenix, LLC-2175652

PATIENT

DRUGS (1)
  1. HALOPERIDOL [Suspect]
     Active Substance: HALOPERIDOL
     Indication: Schizophrenia

REACTIONS (5)
  - Hyperhidrosis [Unknown]
  - Restlessness [Unknown]
  - Feeling abnormal [Unknown]
  - Sitting disability [Unknown]
  - Palpitations [Unknown]
